FAERS Safety Report 17074560 (Version 1)
Quarter: 2019Q4

REPORT INFORMATION
  Report Type: Report from Study
  Country: US (occurrence: US)
  Receive Date: 20191126
  Receipt Date: 20191126
  Transmission Date: 20200122
  Serious: Yes (Death)
  Sender: FDA-Public Use
  Company Number: US-ROCHE-2474227

PATIENT
  Sex: Male

DRUGS (2)
  1. HERCEPTIN [Suspect]
     Active Substance: TRASTUZUMAB
     Dosage: PATIENT RECEIVED  290 MG ON FOLLOWING DATES 26/NOV/2018, 10/DEC/2018, 29/DEC/2018, 07/JAN/2019, 21/
     Route: 041
  2. HERCEPTIN [Suspect]
     Active Substance: TRASTUZUMAB
     Indication: GASTRIC CANCER
     Dosage: FORM OF ADMINISTRATION VIAL
     Route: 041

REACTIONS (1)
  - Death [Fatal]
